FAERS Safety Report 8012218-X (Version None)
Quarter: 2011Q4

REPORT INFORMATION
  Report Type: 
  Country: None (occurrence: None)
  Receive Date: 20111228
  Receipt Date: 20111219
  Transmission Date: 20120403
  Serious: Yes (Hospitalization)
  Sender: FDA-Public Use
  Company Number: FR-ASTRAZENECA-2011SE77378

PATIENT
  Age: 91 Year
  Sex: Female

DRUGS (7)
  1. FENOFIBRATE [Concomitant]
  2. IRBESARTAN AND HYDROCHLOROTHIAZIDE [Suspect]
     Route: 048
     Dates: end: 20110729
  3. TENORMIN [Suspect]
     Route: 048
  4. ASPIRIN [Concomitant]
  5. LERCANIDIPINE [Suspect]
     Route: 048
  6. CLORAZEPATE DIPOTASSIUM [Suspect]
     Route: 048
  7. VASTAREL [Concomitant]

REACTIONS (3)
  - FALL [None]
  - BLOOD PRESSURE DECREASED [None]
  - DIZZINESS [None]
